FAERS Safety Report 9214409 (Version 1)
Quarter: 2013Q2

REPORT INFORMATION
  Report Type: Spontaneous
  Country: US (occurrence: None)
  Receive Date: 20130403
  Receipt Date: 20130403
  Transmission Date: 20140414
  Serious: Yes (Death)
  Sender: FDA-Public Use
  Company Number: MC201300040

PATIENT
  Sex: Female

DRUGS (3)
  1. ANGIOMAX [Suspect]
     Indication: PERCUTANEOUS CORONARY INTERVENTION
     Dosage: BOLUS
     Route: 040
     Dates: start: 20130124, end: 20130124
  2. PLAVIX (CLOPIDOGREL SULFATE) [Concomitant]
  3. MORPHINE (MORPHINE HYDROCHLORIDE) [Concomitant]

REACTIONS (1)
  - Neurological symptom [None]
